FAERS Safety Report 10257146 (Version 1)
Quarter: 2014Q2

REPORT INFORMATION
  Report Type: Report from Study
  Country: US (occurrence: US)
  Receive Date: 20140625
  Receipt Date: 20140625
  Transmission Date: 20141212
  Serious: Yes (Other)
  Sender: FDA-Public Use
  Company Number: US-ROCHE-1420968

PATIENT
  Age: 12 Year
  Sex: Male
  Weight: 44.8 kg

DRUGS (4)
  1. NUTROPIN AQ [Suspect]
     Indication: BODY HEIGHT BELOW NORMAL
     Dosage: 14/MAY/2013
     Route: 058
  2. NUTROPIN AQ [Suspect]
     Dosage: 05/MAY/2012
     Route: 058
  3. NUTROPIN AQ [Suspect]
     Route: 058
  4. CONCERTA [Concomitant]

REACTIONS (3)
  - Scoliosis [Unknown]
  - Attention deficit/hyperactivity disorder [Unknown]
  - Viral infection [Unknown]
